FAERS Safety Report 12653012 (Version 1)
Quarter: 2016Q3

REPORT INFORMATION
  Report Type: Spontaneous
  Country: US (occurrence: US)
  Receive Date: 20160815
  Receipt Date: 20160815
  Transmission Date: 20161109
  Serious: Yes (Hospitalization)
  Sender: FDA-Public Use
  Company Number: US-RARE DISEASE THERAPEUTICS, INC.-1056342

PATIENT
  Age: 58 Year
  Sex: Female
  Weight: 72.5 kg

DRUGS (18)
  1. DEXILANT [Concomitant]
     Active Substance: DEXLANSOPRAZOLE
  2. DIAZEPAM. [Concomitant]
     Active Substance: DIAZEPAM
  3. CYSTADANE [Suspect]
     Active Substance: BETAINE
     Dates: start: 20140719
  4. DILTIAZEM. [Concomitant]
     Active Substance: DILTIAZEM
  5. CYSTADANE [Suspect]
     Active Substance: BETAINE
     Indication: HOMOCYSTINURIA
     Dates: start: 201106
  6. VITAMIN B6 [Concomitant]
     Active Substance: PYRIDOXINE HYDROCHLORIDE
  7. ASPRIN [Concomitant]
     Active Substance: ASPIRIN
  8. FOLIC ACID. [Concomitant]
     Active Substance: FOLIC ACID
  9. MULTIVITAMIN [Concomitant]
     Active Substance: VITAMINS
  10. BUTALBITAL WITH CODEINE / PARACETAMOL [Concomitant]
  11. CLARITIN [Concomitant]
     Active Substance: LORATADINE
  12. NEURONTIN [Concomitant]
     Active Substance: GABAPENTIN
  13. FIBER CHOICE PLUS CALCIUM [Concomitant]
  14. LORTAB [Concomitant]
     Active Substance: ACETAMINOPHEN\HYDROCODONE BITARTRATE
  15. FLONASE [Concomitant]
     Active Substance: FLUTICASONE PROPIONATE
  16. VITAMIN C [Concomitant]
     Active Substance: ASCORBIC ACID
  17. FUROSEMIDE. [Concomitant]
     Active Substance: FUROSEMIDE
  18. NITROSTAT [Concomitant]
     Active Substance: NITROGLYCERIN

REACTIONS (2)
  - Knee arthroplasty [Not Recovered/Not Resolved]
  - Overdose [Unknown]

NARRATIVE: CASE EVENT DATE: 20160729
